FAERS Safety Report 21998414 (Version 1)
Quarter: 2023Q1

REPORT INFORMATION
  Report Type: Spontaneous
  Country: US (occurrence: US)
  Receive Date: 20230216
  Receipt Date: 20230216
  Transmission Date: 20230417
  Serious: Yes (Other)
  Sender: FDA-Public Use
  Company Number: US-AUROBINDO-AUR-APL-2023-006839

PATIENT
  Age: 61 Year
  Sex: Male

DRUGS (19)
  1. CYCLOPHOSPHAMIDE [Suspect]
     Active Substance: CYCLOPHOSPHAMIDE
     Indication: Plasma cell myeloma
     Dosage: UNK
     Route: 065
  2. DEXAMETHASONE [Suspect]
     Active Substance: DEXAMETHASONE
     Indication: Plasma cell myeloma
     Dosage: UNK
     Route: 065
  3. MELPHALAN [Suspect]
     Active Substance: MELPHALAN
     Indication: Plasma cell myeloma
     Dosage: 140 MILLIGRAM/SQ. METER
     Route: 065
  4. POMALIDOMIDE [Suspect]
     Active Substance: POMALIDOMIDE
     Indication: Plasma cell myeloma
     Dosage: UNK
     Route: 065
  5. CARFILZOMIB [Suspect]
     Active Substance: CARFILZOMIB
     Indication: Plasma cell myeloma
     Dosage: UNK
     Route: 065
  6. CARMUSTINE [Suspect]
     Active Substance: CARMUSTINE
     Indication: Plasma cell myeloma
     Dosage: 300 MILLIGRAM/SQ. METER
     Route: 065
  7. CISPLATIN [Suspect]
     Active Substance: CISPLATIN
     Indication: Plasma cell myeloma
     Dosage: UNK
     Route: 065
  8. DARATUMUMAB [Suspect]
     Active Substance: DARATUMUMAB
     Indication: Plasma cell myeloma
     Dosage: UNK
     Route: 065
  9. ETOPOSIDE [Suspect]
     Active Substance: ETOPOSIDE
     Indication: Plasma cell myeloma
     Dosage: UNK
     Route: 065
  10. IDECABTAGENE VICLEUCEL [Suspect]
     Active Substance: IDECABTAGENE VICLEUCEL
     Indication: Plasma cell myeloma
     Dosage: UNK
     Route: 065
  11. LENALIDOMIDE [Suspect]
     Active Substance: LENALIDOMIDE
     Indication: Plasma cell myeloma
     Dosage: UNK
     Route: 065
  12. VELCADE [Suspect]
     Active Substance: BORTEZOMIB
     Indication: Plasma cell myeloma
     Dosage: UNK
     Route: 065
  13. DABRAFENIB [Concomitant]
     Active Substance: DABRAFENIB
     Indication: Plasma cell myeloma
     Dosage: 100 MILLIGRAM, TWO TIMES A DAY
     Route: 048
  14. DABRAFENIB [Concomitant]
     Active Substance: DABRAFENIB
     Dosage: 150 MILLIGRAM, TWO TIMES A DAY
     Route: 048
  15. TRAMETINIB [Concomitant]
     Active Substance: TRAMETINIB
     Indication: Plasma cell myeloma
     Dosage: 1.5 MILLIGRAM, DAILY (21/28 DAYS)
     Route: 048
  16. TRAMETINIB [Concomitant]
     Active Substance: TRAMETINIB
     Dosage: 1.5 MILLIGRAM, DAILY (21/28 DAYS)
     Route: 048
  17. REGORAFENIB [Concomitant]
     Active Substance: REGORAFENIB
     Indication: Plasma cell myeloma
     Dosage: 40 MILLIGRAM, DAILY
     Route: 048
  18. REGORAFENIB [Concomitant]
     Active Substance: REGORAFENIB
     Dosage: 80 MILLIGRAM, DAILY
     Route: 048
  19. COPANLISIB [Concomitant]
     Active Substance: COPANLISIB
     Indication: Product used for unknown indication
     Dosage: UNK
     Route: 065

REACTIONS (1)
  - Drug ineffective [Unknown]
